FAERS Safety Report 5651525-2 (Version None)
Quarter: 2008Q1

REPORT INFORMATION
  Report Type: 
  Country: None (occurrence: None)
  Receive Date: 20080305
  Receipt Date: 20080225
  Transmission Date: 20080703
  Serious: Yes (Hospitalization, Other)
  Sender: FDA-Public Use
  Company Number: US-ELI_LILLY_AND_COMPANY-US200802005697

PATIENT
  Sex: Female

DRUGS (6)
  1. HUMULIN R [Suspect]
     Indication: DIABETES MELLITUS
  2. KLOR-CON [Concomitant]
     Dosage: 20 MG, DAILY (1/D)
  3. CARVEDILOL [Concomitant]
  4. LEVOTHYROXINE SODIUM [Concomitant]
  5. HYTRIN [Concomitant]
  6. FOLIC ACID [Concomitant]

REACTIONS (2)
  - BLOOD POTASSIUM INCREASED [None]
  - RENAL FAILURE [None]
